FAERS Safety Report 4878785-X (Version None)
Quarter: 2006Q1

REPORT INFORMATION
  Report Type: 
  Country: None (occurrence: None)
  Receive Date: 20060112
  Receipt Date: 20060105
  Transmission Date: 20060701
  Serious: Yes (Hospitalization)
  Sender: FDA-Public Use
  Company Number: PHBS2006CH00567

PATIENT
  Age: 15 Year
  Sex: Female

DRUGS (2)
  1. THIETHYLPERAZINE MALEATE [Suspect]
     Indication: NAUSEA
     Dosage: 1 DF, QHS
     Route: 048
  2. THIETHYLPERAZINE MALEATE [Suspect]
     Dosage: 1 DF, BID
     Route: 048

REACTIONS (14)
  - ANAPHYLACTIC REACTION [None]
  - ANGIONEUROTIC OEDEMA [None]
  - DYSKINESIA [None]
  - DYSPHAGIA [None]
  - ERYTHEMA [None]
  - EXTRAPYRAMIDAL DISORDER [None]
  - FACE OEDEMA [None]
  - MUSCLE CONTRACTIONS INVOLUNTARY [None]
  - RESPIRATORY DISTRESS [None]
  - RESPIRATORY RATE INCREASED [None]
  - SPEECH DISORDER [None]
  - TONGUE OEDEMA [None]
  - TRISMUS [None]
  - WHEEZING [None]
